FAERS Safety Report 7288547-4 (Version None)
Quarter: 2011Q1

REPORT INFORMATION
  Report Type: 
  Country: None (occurrence: None)
  Receive Date: 20110211
  Receipt Date: 20110205
  Transmission Date: 20110831
  Serious: Yes (Other)
  Sender: FDA-Public Use
  Company Number: NL-AMGEN-NLDSP2011006971

PATIENT
  Age: 42 Year
  Sex: Female

DRUGS (1)
  1. NEULASTA [Suspect]
     Indication: PRODUCT USED FOR UNKNOWN INDICATION
     Dosage: 6 MG, UNK

REACTIONS (5)
  - CHEST PAIN [None]
  - VOMITING [None]
  - MALAISE [None]
  - CIRCULATORY COLLAPSE [None]
  - BACK PAIN [None]
